FAERS Safety Report 9176161 (Version 1)
Quarter: 2012Q4

REPORT INFORMATION
  Report Type: 
  Country: US (occurrence: US)
  Receive Date: 20120921
  Receipt Date: 20120921
  Transmission Date: 20130627
  Serious: Yes (Other)
  Sender: FDA-Public Use
  Company Number: US-RB-044553-12

PATIENT
  Sex: Female

DRUGS (1)
  1. MUCINEX FAST MAX CAPLETS COLD + SINUS [Suspect]
     Indication: PRODUCT USED FOR UNKNOWN INDICATION
     Dosage: 2 Capsules on 08-Sep-2012 and 2 Capsules on 09-Sep-2012.
     Route: 048
     Dates: start: 20120908

REACTIONS (1)
  - Haematemesis [Unknown]
